FAERS Safety Report 7396549-2 (Version None)
Quarter: 2011Q2

REPORT INFORMATION
  Report Type: 
  Country: None (occurrence: None)
  Receive Date: 20110406
  Receipt Date: 20110303
  Transmission Date: 20111010
  Serious: Yes (Death)
  Sender: FDA-Public Use
  Company Number: GB-AMGEN-GBRCT2010006947

PATIENT
  Age: 63 Year
  Sex: Female
  Weight: 93 kg

DRUGS (14)
  1. DEXAMETHASONE [Concomitant]
     Route: 048
     Dates: start: 20100915, end: 20101128
  2. SERETIDE [Concomitant]
     Dosage: UNK
     Dates: start: 20100501
  3. HYDROCORTISONE [Concomitant]
     Route: 061
     Dates: start: 20101020, end: 20101127
  4. CARBOCISTEINE [Concomitant]
     Dosage: 375 MG, QD
     Route: 042
     Dates: start: 20100901
  5. VENTOLIN [Concomitant]
     Dosage: UNK UNK, PRN
     Dates: start: 20070101
  6. DEXAMETHASONE [Concomitant]
     Dosage: 4 MG, QD
     Route: 048
     Dates: start: 20100901
  7. ATROVENT [Concomitant]
     Dosage: UNK
     Dates: start: 20100901
  8. XALATAN [Concomitant]
     Indication: GLAUCOMA
     Route: 050
     Dates: start: 20060615, end: 20101128
  9. PANITUMUMAB [Suspect]
     Indication: COLORECTAL CANCER METASTATIC
     Dosage: 550 MG, Q2WK
     Route: 042
     Dates: start: 20101006, end: 20101116
  10. ATROVENT [Concomitant]
     Route: 050
     Dates: start: 20100915, end: 20101128
  11. LYMECYCLINE [Concomitant]
     Route: 061
     Dates: start: 20101020, end: 20101128
  12. TRIMETHOPRIM [Concomitant]
     Indication: URINARY TRACT INFECTION
     Route: 048
  13. SOFRADEX [Concomitant]
     Route: 050
     Dates: start: 20101013
  14. DIPROBASE [Concomitant]
     Indication: DRY SKIN
     Route: 061
     Dates: start: 20101020, end: 20101128

REACTIONS (1)
  - SEPSIS [None]
